FAERS Safety Report 8042723-1 (Version None)
Quarter: 2012Q1

REPORT INFORMATION
  Report Type: 
  Country: None (occurrence: None)
  Receive Date: 20120112
  Receipt Date: 20120106
  Transmission Date: 20120608
  Serious: Yes (Death)
  Sender: FDA-Public Use
  Company Number: US-ACTELION-A-NJ2011-58709

PATIENT

DRUGS (11)
  1. SILDENAFIL [Concomitant]
  2. MAGNESIUM OXIDE [Concomitant]
  3. OXYGEN [Concomitant]
  4. METOPROLOL [Concomitant]
  5. POTASSIUM CHLORIDE [Concomitant]
  6. FUROSEMIDE [Concomitant]
  7. WARFARIN SODIUM [Concomitant]
  8. TRACLEER [Suspect]
     Indication: PULMONARY ARTERIAL HYPERTENSION
     Dosage: UNK
     Route: 048
     Dates: start: 20110511, end: 20111216
  9. TIKOSYN [Concomitant]
  10. DIGOXIN [Concomitant]
  11. SPIRONOLACTONE [Concomitant]

REACTIONS (3)
  - PULMONARY HYPERTENSION [None]
  - DISEASE PROGRESSION [None]
  - RIGHT VENTRICULAR FAILURE [None]
